FAERS Safety Report 8281804-4 (Version None)
Quarter: 2012Q2

REPORT INFORMATION
  Report Type: 
  Country: None (occurrence: None)
  Receive Date: 20120413
  Receipt Date: 20120402
  Transmission Date: 20120825
  Serious: Yes (Other)
  Sender: FDA-Public Use
  Company Number: PHHY2012FR028036

PATIENT
  Sex: Female

DRUGS (5)
  1. SECTRAL [Concomitant]
     Indication: HYPERTENSION
  2. DILTIAZEM HCL [Concomitant]
     Indication: HYPERTENSION
     Dosage: 1 DF, DAILY
  3. RASILEZ HCT [Suspect]
     Indication: HYPERTENSION
     Dosage: 1 DF, DAILY
     Route: 048
  4. ALDACTONE [Concomitant]
     Indication: HYPERTENSION
  5. HYPERIUM [Concomitant]
     Indication: HYPERTENSION
     Dosage: 2 DF, DAILY

REACTIONS (1)
  - RENAL ARTERY STENOSIS [None]
